FAERS Safety Report 17499455 (Version 1)
Quarter: 2020Q1

REPORT INFORMATION
  Report Type: Report from Study
  Country: None (occurrence: US)
  Receive Date: 20200305
  Receipt Date: 20200305
  Transmission Date: 20200409
  Serious: Yes (Other)
  Sender: FDA-Public Use
  Company Number: US-ABBVIE-20K-163-3302368-00

PATIENT
  Sex: Female

DRUGS (1)
  1. HUMIRA [Suspect]
     Active Substance: ADALIMUMAB
     Indication: PRODUCT USED FOR UNKNOWN INDICATION
     Route: 058
     Dates: start: 2017

REACTIONS (5)
  - Fungal skin infection [Recovering/Resolving]
  - Abdominal discomfort [Recovering/Resolving]
  - Rash [Recovering/Resolving]
  - Renal impairment [Recovering/Resolving]
  - Gait inability [Recovering/Resolving]
